FAERS Safety Report 8879364 (Version 1)
Quarter: 2012Q4

REPORT INFORMATION
  Report Type: 
  Country: US (occurrence: US)
  Receive Date: 20121031
  Receipt Date: 20121031
  Transmission Date: 20130627
  Serious: No
  Sender: FDA-Public Use
  Company Number: US-B.I. PHARMACEUTICALS,INC./RIDGEFIELD-2012-BP-26732BP

PATIENT
  Age: 67 Year
  Sex: Female
  Weight: 66 kg

DRUGS (8)
  1. MICARDIS HCT [Suspect]
     Indication: HYPERTENSION
     Route: 048
     Dates: start: 2010
  2. SPIRIVA [Suspect]
     Indication: DYSPNOEA
     Dosage: 18 mcg
     Route: 055
     Dates: start: 2010
  3. LIPITOR [Concomitant]
     Indication: BLOOD CHOLESTEROL INCREASED
     Dosage: 10 mg
     Route: 048
     Dates: start: 2010
  4. SYNTHROID [Concomitant]
     Indication: HYPOTHYROIDISM
     Dosage: 25 mcg
     Route: 048
     Dates: start: 2009
  5. PRILOSEC [Concomitant]
     Indication: GASTROOESOPHAGEAL REFLUX DISEASE
     Dosage: 20 mg
     Route: 048
     Dates: start: 2009
  6. ALBUTEROL [Concomitant]
     Route: 055
     Dates: start: 2009
  7. LORAZEPAM [Concomitant]
     Indication: ANXIETY
     Dosage: 1 mg
     Route: 048
     Dates: start: 2008
  8. DULERA [Concomitant]
     Route: 055
     Dates: start: 2009

REACTIONS (3)
  - Fatigue [Recovered/Resolved]
  - Blood pressure abnormal [Not Recovered/Not Resolved]
  - Asthenia [Recovered/Resolved]
